FAERS Safety Report 11094736 (Version 2)
Quarter: 2015Q3

REPORT INFORMATION
  Report Type: Spontaneous
  Country: DE (occurrence: JP)
  Receive Date: 20150506
  Receipt Date: 20150724
  Transmission Date: 20151125
  Serious: Yes (Hospitalization)
  Sender: FDA-Public Use
  Company Number: JP-FRI-1000076264

PATIENT
  Age: 86 Year
  Sex: Male
  Weight: 50 kg

DRUGS (6)
  1. MEMANTINE. [Suspect]
     Active Substance: MEMANTINE
     Indication: DEMENTIA
     Dosage: 5 MG
     Route: 048
     Dates: start: 20150309, end: 20150327
  2. OLMETEC [Concomitant]
     Active Substance: OLMESARTAN MEDOXOMIL
  3. REMINYL [Concomitant]
     Active Substance: GALANTAMINE
     Dates: start: 201412, end: 20150327
  4. MAGMITT [Concomitant]
     Active Substance: MAGNESIUM OXIDE
  5. TAKEPRON [Concomitant]
     Active Substance: LANSOPRAZOLE
  6. ADALAT [Concomitant]
     Active Substance: NIFEDIPINE

REACTIONS (1)
  - Platelet count decreased [Recovering/Resolving]

NARRATIVE: CASE EVENT DATE: 20150327
